FAERS Safety Report 5694564-8 (Version None)
Quarter: 2008Q2

REPORT INFORMATION
  Report Type: 
  Country: None (occurrence: None)
  Receive Date: 20080404
  Receipt Date: 20080320
  Transmission Date: 20081010
  Serious: Yes (Death)
  Sender: FDA-Public Use
  Company Number: GB-BAUSCH-2008BL001245

PATIENT
  Age: 15 Year
  Sex: Male

DRUGS (5)
  1. PREDNISOLONE [Suspect]
     Indication: LIVER TRANSPLANT
  2. CASPOFUNGIN ACETATE [Suspect]
     Indication: LUNG DISORDER
     Route: 042
  3. MYCOPHENOLATE MOFETIL [Suspect]
     Indication: DRUG USE FOR UNKNOWN INDICATION
  4. PROGRAF /USA/ [Suspect]
     Indication: LIVER TRANSPLANT
  5. VORICONAZOLE [Suspect]
     Indication: LUNG DISORDER

REACTIONS (4)
  - AUTOIMMUNE HEPATITIS [None]
  - BRONCHOPULMONARY ASPERGILLOSIS [None]
  - HYDROPNEUMOTHORAX [None]
  - RESPIRATORY FAILURE [None]
